FAERS Safety Report 5320865-9 (Version None)
Quarter: 2007Q2

REPORT INFORMATION
  Report Type: 
  Country: None (occurrence: None)
  Receive Date: 20070504
  Receipt Date: 20070418
  Transmission Date: 20071010
  Serious: Yes (Life-Threatening, Hospitalization)
  Sender: FDA-Public Use
  Company Number: DSA_29676_2007

PATIENT
  Sex: Female

DRUGS (2)
  1. TAVOR/00273201/(TAVOR) 1 MG [Suspect]
     Dosage: (8 MG 1X SUBLINGUAL)
     Route: 060
     Dates: start: 20070402, end: 20070402
  2. DOMINAL (DOMINAL FORTE) 40 MG [Suspect]
     Dosage: (2000 MG 1X ORAL)
     Route: 048
     Dates: start: 20070402, end: 20070402

REACTIONS (3)
  - MULTIPLE DRUG OVERDOSE INTENTIONAL [None]
  - SINUS TACHYCARDIA [None]
  - SUICIDE ATTEMPT [None]
